FAERS Safety Report 6029524-0 (Version None)
Quarter: 2009Q1

REPORT INFORMATION
  Report Type: 
  Country: None (occurrence: None)
  Receive Date: 20090107
  Receipt Date: 20090105
  Transmission Date: 20090719
  Serious: Yes (Death)
  Sender: FDA-Public Use
  Company Number: US-RB-007577-08

PATIENT
  Age: 32 Year
  Sex: Male

DRUGS (6)
  1. DELSYM [Suspect]
     Dosage: DRUNK ENTIRE CONTAINER
  2. HYDROCHLOROTHIAZIDE [Concomitant]
  3. LEVOTHYROXINE [Concomitant]
  4. K [Concomitant]
  5. BENZOTROPINE [Concomitant]
  6. SIMBIAX [Concomitant]

REACTIONS (5)
  - BREATHING-RELATED SLEEP DISORDER [None]
  - DRUG TOXICITY [None]
  - HALLUCINATION [None]
  - INSOMNIA [None]
  - OVERDOSE [None]
